FAERS Safety Report 5006334-4 (Version None)
Quarter: 2006Q2

REPORT INFORMATION
  Report Type: 
  Country: None (occurrence: None)
  Receive Date: 20060519
  Receipt Date: 20060509
  Transmission Date: 20061013
  Serious: Yes (Hospitalization)
  Sender: FDA-Public Use
  Company Number: PHRM2006FR01541

PATIENT
  Age: 74 Year
  Sex: Male

DRUGS (7)
  1. VOLTAREN [Suspect]
     Dosage: 4 DF/DAY
     Route: 061
     Dates: start: 20060315, end: 20060411
  2. SECTRAL [Concomitant]
     Dosage: 200 MG, QD
     Route: 048
  3. COLCHICINE ^HOUDE^ [Concomitant]
     Dosage: 2 MG/DAY
     Route: 048
  4. SPECIAFOLDINE [Concomitant]
     Route: 048
  5. COUMADIN [Suspect]
     Dosage: 4 MG/DAY
     Route: 048
     Dates: start: 20060315, end: 20060411
  6. LEVOTHYROX [Suspect]
     Dosage: 125 A?G/DAY
     Route: 048
  7. VOLTAREN [Suspect]
     Route: 048
     Dates: start: 20060315, end: 20060321

REACTIONS (5)
  - BLOOD CREATININE INCREASED [None]
  - COAGULOPATHY [None]
  - DRUG INTERACTION [None]
  - HYPERKALAEMIA [None]
  - RENAL FAILURE ACUTE [None]
